FAERS Safety Report 25916448 (Version 2)
Quarter: 2025Q4

REPORT INFORMATION
  Report Type: Spontaneous
  Country: EU (occurrence: None)
  Receive Date: 20251014
  Receipt Date: 20251111
  Transmission Date: 20260118
  Serious: Yes (Other)
  Sender: UCB
  Company Number: EU-UCBSA-2025057874

PATIENT
  Age: 42 Year

DRUGS (3)
  1. CIMZIA [Suspect]
     Active Substance: CERTOLIZUMAB PEGOL
     Indication: Rheumatoid arthritis
     Dosage: UNK, 2X/MONTH, 2 INJECTION TWIC A MONTH, THEN 1 INJECTION EV 2 WEEKS
  2. CIMZIA [Suspect]
     Active Substance: CERTOLIZUMAB PEGOL
     Indication: Scleroderma
  3. CIMZIA [Suspect]
     Active Substance: CERTOLIZUMAB PEGOL
     Indication: Off label use

REACTIONS (9)
  - Rheumatoid arthritis [Not Recovered/Not Resolved]
  - Scleroderma [Not Recovered/Not Resolved]
  - Condition aggravated [Not Recovered/Not Resolved]
  - Rash pruritic [Recovered/Resolved]
  - Inappropriate schedule of product administration [Unknown]
  - Product availability issue [Unknown]
  - Product dose omission issue [Unknown]
  - Drug ineffective [Unknown]
  - Off label use [Unknown]
